FAERS Safety Report 25945644 (Version 1)
Quarter: 2025Q4

REPORT INFORMATION
  Report Type: Report from Study
  Country: EU (occurrence: EU)
  Receive Date: 20251021
  Receipt Date: 20251021
  Transmission Date: 20260118
  Serious: Yes (Death, Hospitalization)
  Sender: TAKEDA
  Company Number: EU-TAKEDA-2025TUS091262

PATIENT
  Age: 74 Year
  Sex: Female

DRUGS (1)
  1. HUMAN IMMUNOGLOBULIN G\HYALURONIDASE RECOMBINANT HUMAN [Suspect]
     Active Substance: HUMAN IMMUNOGLOBULIN G\HYALURONIDASE (HUMAN RECOMBINANT)
     Indication: Immunodeficiency
     Dosage: 300 MILLILITER

REACTIONS (6)
  - Large intestine infection [Fatal]
  - Cardiac disorder [Fatal]
  - Blood test abnormal [Fatal]
  - White blood cell count abnormal [Fatal]
  - Influenza [Fatal]
  - Drug ineffective [Unknown]
